FAERS Safety Report 7762826-6 (Version None)
Quarter: 2011Q3

REPORT INFORMATION
  Report Type: 
  Country: None (occurrence: None)
  Receive Date: 20110920
  Receipt Date: 20110916
  Transmission Date: 20111222
  Serious: Yes (Life-Threatening)
  Sender: FDA-Public Use
  Company Number: CZ-MERCK-1109USA01823

PATIENT
  Age: 62 Year
  Sex: Male

DRUGS (13)
  1. OLICARD [Concomitant]
     Route: 065
  2. TROMBEX [Concomitant]
     Route: 065
  3. PREDUCTAL MR [Concomitant]
     Route: 065
  4. MOLSIHEXAL [Concomitant]
     Route: 065
  5. BETALOC [Concomitant]
     Route: 065
  6. ANOPYRIN [Concomitant]
     Route: 065
  7. HELICID (OMEPRAZOLE) [Concomitant]
     Route: 065
  8. ZETIA [Suspect]
     Route: 048
     Dates: start: 20110501, end: 20110908
  9. ROSUVASTATIN CALCIUM [Suspect]
     Route: 065
     Dates: start: 20110501, end: 20110908
  10. PRENESSA [Concomitant]
     Route: 065
  11. AMLODIPINE BESYLATE [Concomitant]
     Route: 065
  12. ENELBIN [Concomitant]
     Route: 065
  13. MILURIT [Concomitant]
     Route: 065

REACTIONS (2)
  - RHABDOMYOLYSIS [None]
  - RENAL FAILURE ACUTE [None]
